FAERS Safety Report 12341040 (Version 1)
Quarter: 2016Q2

REPORT INFORMATION
  Report Type: Spontaneous
  Country: US (occurrence: None)
  Receive Date: 20160505
  Receipt Date: 20160505
  Transmission Date: 20160815
  Serious: No
  Sender: FDA-Public Use
  Company Number: None

PATIENT
  Age: 76 Year
  Sex: Female
  Weight: 56.7 kg

DRUGS (10)
  1. ATENOLOL. [Concomitant]
     Active Substance: ATENOLOL
  2. CELEBREX [Concomitant]
     Active Substance: CELECOXIB
  3. ASA [Concomitant]
     Active Substance: ASPIRIN
  4. ZOCOR [Concomitant]
     Active Substance: SIMVASTATIN
  5. GLUCOSAMINE + CHRONDROITIN [Concomitant]
  6. TRAMADOL. [Concomitant]
     Active Substance: TRAMADOL
  7. FISH OIL [Concomitant]
     Active Substance: FISH OIL
  8. LOSARTAN. [Concomitant]
     Active Substance: LOSARTAN
  9. LATISSE [Suspect]
     Active Substance: BIMATOPROST
     Indication: HAIR DISORDER
     Dosage: 1 DROP EYELASH EVERY NIGHT APPLIED TO EACH EYELASH ALONG THE FROM INNER TO OUTER
     Dates: start: 20160105, end: 20160303
  10. TYLENOL WITH CODEINE [Concomitant]
     Active Substance: ACETAMINOPHEN\CODEINE PHOSPHATE

REACTIONS (1)
  - Treatment failure [None]

NARRATIVE: CASE EVENT DATE: 20160316
